FAERS Safety Report 14295976 (Version 1)
Quarter: 2017Q4

REPORT INFORMATION
  Report Type: Spontaneous
  Country: US (occurrence: US)
  Receive Date: 20171218
  Receipt Date: 20171218
  Transmission Date: 20180321
  Serious: Yes (Other)
  Sender: FDA-Public Use
  Company Number: US-ROCHE-2040465

PATIENT
  Age: 52 Year
  Sex: Female
  Weight: 58.11 kg

DRUGS (4)
  1. KLONOPIN [Suspect]
     Active Substance: CLONAZEPAM
     Indication: ANXIETY DISORDER
     Route: 065
     Dates: start: 2017, end: 2017
  2. KLONOPIN [Suspect]
     Active Substance: CLONAZEPAM
     Route: 065
     Dates: start: 2017
  3. KLONOPIN [Suspect]
     Active Substance: CLONAZEPAM
     Indication: PANIC DISORDER
     Route: 065
     Dates: start: 1996, end: 2017
  4. ABILIFY [Suspect]
     Active Substance: ARIPIPRAZOLE
     Indication: ANXIETY DISORDER
     Route: 065
     Dates: start: 201711, end: 201711

REACTIONS (11)
  - Nervousness [Not Recovered/Not Resolved]
  - Feeling abnormal [Unknown]
  - Dizziness [Not Recovered/Not Resolved]
  - Anxiety [Unknown]
  - Blood pressure increased [Not Recovered/Not Resolved]
  - Asthenia [Not Recovered/Not Resolved]
  - Ventricular extrasystoles [Recovered/Resolved]
  - Heart rate increased [Not Recovered/Not Resolved]
  - Insomnia [Not Recovered/Not Resolved]
  - Blindness [Unknown]
  - Supraventricular extrasystoles [Recovered/Resolved]

NARRATIVE: CASE EVENT DATE: 201710
